FAERS Safety Report 5888077-8 (Version None)
Quarter: 2008Q3

REPORT INFORMATION
  Report Type: 
  Country: None (occurrence: None)
  Receive Date: 20080917
  Receipt Date: 20080917
  Transmission Date: 20090109
  Serious: Yes (Hospitalization)
  Sender: FDA-Public Use
  Company Number: None

PATIENT
  Sex: Male
  Weight: 75.8 kg

DRUGS (4)
  1. DAUNORUBICIN HCL [Suspect]
     Dosage: 357 MG
  2. PREDNISONE [Suspect]
     Dosage: 1309 MG
  3. VINCRISTINE SULFATE [Suspect]
     Dosage: 4 MG
  4. ALLOPURINOL [Suspect]

REACTIONS (10)
  - BACILLUS INFECTION [None]
  - BACTERIAL INFECTION [None]
  - BLOOD CULTURE POSITIVE [None]
  - BLOOD PRESSURE DECREASED [None]
  - CARDIO-RESPIRATORY ARREST [None]
  - CARDIOMEGALY [None]
  - CATHETER SITE INFECTION [None]
  - CENTRAL LINE INFECTION [None]
  - LUNG INFILTRATION [None]
  - OEDEMA [None]
